FAERS Safety Report 4367462-X (Version None)
Quarter: 2004Q2

REPORT INFORMATION
  Report Type: 
  Country: None (occurrence: None)
  Receive Date: 20040525
  Receipt Date: 20040510
  Transmission Date: 20050107
  Serious: No
  Sender: FDA-Public Use
  Company Number: CART-10204

PATIENT
  Age: 29 Year
  Sex: Female

DRUGS (1)
  1. CARTICEL [Suspect]
     Indication: ARTHROPATHY
     Dosage: 1 ONCE IS
     Route: 035
     Dates: start: 19970519, end: 19970519

REACTIONS (2)
  - FALL [None]
  - TRANSPLANT FAILURE [None]
